FAERS Safety Report 17506842 (Version 1)
Quarter: 2020Q1

REPORT INFORMATION
  Report Type: Spontaneous
  Country: US (occurrence: US)
  Receive Date: 20200306
  Receipt Date: 20200306
  Transmission Date: 20200409
  Serious: Yes (Other)
  Sender: FDA-Public Use
  Company Number: US-TEVA-2020-US-1194959

PATIENT
  Age: 55 Year
  Sex: Male
  Weight: 117.93 kg

DRUGS (13)
  1. ALBUTEROL SULFATE. [Concomitant]
     Active Substance: ALBUTEROL SULFATE
     Route: 065
  2. SERTRALINE [Concomitant]
     Active Substance: SERTRALINE HYDROCHLORIDE
     Route: 065
  3. ACICLOVIR [Suspect]
     Active Substance: ACYCLOVIR
     Indication: HERPES SIMPLEX
     Dosage: INCREASED 10 MG EVERYDAY
     Route: 048
  4. ACICLOVIR [Suspect]
     Active Substance: ACYCLOVIR
     Indication: WARTY DYSKERATOMA
  5. SALICYLIC ACID. [Suspect]
     Active Substance: SALICYLIC ACID
     Indication: ANTIINFLAMMATORY THERAPY
     Route: 065
  6. ACICLOVIR [Suspect]
     Active Substance: ACYCLOVIR
     Indication: BLISTER
  7. HIBICLENS [Suspect]
     Active Substance: CHLORHEXIDINE GLUCONATE
     Indication: ANTIINFLAMMATORY THERAPY
     Route: 065
  8. HYDROCHLOROTHIAZIDE. [Concomitant]
     Active Substance: HYDROCHLOROTHIAZIDE
     Route: 065
  9. NORCO [Concomitant]
     Active Substance: ACETAMINOPHEN\HYDROCODONE BITARTRATE
     Dosage: 5/325 MG
     Route: 065
  10. ISOTRETINOIN. [Suspect]
     Active Substance: ISOTRETINOIN
     Indication: ANTIINFLAMMATORY THERAPY
     Route: 048
  11. SORIATANE [Suspect]
     Active Substance: ACITRETIN
     Indication: WARTY DYSKERATOMA
     Dosage: 10 MILLIGRAM DAILY;
     Route: 048
  12. SORIATANE [Suspect]
     Active Substance: ACITRETIN
     Indication: ANTIINFLAMMATORY THERAPY
  13. ACICLOVIR [Suspect]
     Active Substance: ACYCLOVIR
     Indication: KERATOSIS FOLLICULAR

REACTIONS (26)
  - Skin cancer [Unknown]
  - Pain [Unknown]
  - Fungal infection [Unknown]
  - Arthralgia [Unknown]
  - Hallucination [Unknown]
  - Keratosis follicular [Unknown]
  - Neck pain [Recovered/Resolved]
  - Seborrhoeic dermatitis [Unknown]
  - Product dose omission [Unknown]
  - Hypertension [Unknown]
  - Scar [Recovered/Resolved]
  - Genital lesion [Unknown]
  - Staphylococcal infection [Unknown]
  - Condition aggravated [Recovered/Resolved]
  - Skin lesion [Unknown]
  - Skin disorder [Unknown]
  - Depression [Unknown]
  - Obesity [Unknown]
  - Ear pain [Unknown]
  - Hyperkeratosis [Unknown]
  - Drug ineffective [Unknown]
  - Herpes simplex [Unknown]
  - Groin pain [Unknown]
  - Musculoskeletal stiffness [Unknown]
  - Pruritus [Unknown]
  - Parosmia [Unknown]
